FAERS Safety Report 20397300 (Version 2)
Quarter: 2022Q1

REPORT INFORMATION
  Report Type: Spontaneous
  Country: US (occurrence: US)
  Receive Date: 20220131
  Receipt Date: 20220201
  Transmission Date: 20220423
  Serious: No
  Sender: FDA-Public Use
  Company Number: US-ABBVIE-21K-163-3876276-00

PATIENT
  Age: 78 Year
  Sex: Female
  Weight: 52.210 kg

DRUGS (6)
  1. HUMIRA [Suspect]
     Active Substance: ADALIMUMAB
     Indication: Serpiginous choroiditis
     Route: 058
     Dates: start: 202012
  2. LISINOPRIL [Concomitant]
     Active Substance: LISINOPRIL
     Indication: Blood pressure measurement
  3. NEXIUM [Concomitant]
     Active Substance: ESOMEPRAZOLE MAGNESIUM
     Indication: Gastrooesophageal reflux disease
  4. PRAVASTATIN [Concomitant]
     Active Substance: PRAVASTATIN
     Indication: Blood cholesterol
  5. COVID-19 VACCINE [Concomitant]
     Indication: COVID-19 immunisation
     Dosage: FIRST DOSE/PFIZER
     Route: 065
     Dates: start: 20210218, end: 20210218
  6. COVID-19 VACCINE [Concomitant]
     Dosage: SECOND DOSE/PFIZER
     Route: 065
     Dates: start: 20210312, end: 20210312

REACTIONS (2)
  - Off label use [Unknown]
  - Device issue [Unknown]

NARRATIVE: CASE EVENT DATE: 20201201
